FAERS Safety Report 14342742 (Version 2)
Quarter: 2018Q2

REPORT INFORMATION
  Report Type: Spontaneous
  Country: GB (occurrence: GB)
  Receive Date: 20180102
  Receipt Date: 20180404
  Transmission Date: 20180711
  Serious: Yes (Other)
  Sender: FDA-Public Use
  Company Number: GB-ALEXION-A201714688

PATIENT
  Age: 4 Year
  Sex: Male

DRUGS (3)
  1. SOLIRIS [Suspect]
     Active Substance: ECULIZUMAB
     Indication: ATYPICAL HAEMOLYTIC URAEMIC SYNDROME
     Dosage: 600 MG,DAYS 1 AND 7
     Route: 065
  2. SOLIRIS [Suspect]
     Active Substance: ECULIZUMAB
     Indication: OFF LABEL USE
     Dosage: 300 MG, Q2W
     Route: 065
  3. SOLIRIS [Suspect]
     Active Substance: ECULIZUMAB
     Indication: GLUCOSE-6-PHOSPHATE DEHYDROGENASE DEFICIENCY
     Dosage: 300 MG, UNK
     Route: 065

REACTIONS (11)
  - Off label use [Unknown]
  - Platelet count abnormal [Recovered/Resolved]
  - Acute kidney injury [Unknown]
  - Lower respiratory tract infection [Unknown]
  - Metapneumovirus infection [Unknown]
  - Red blood cell count decreased [Unknown]
  - Haemolytic anaemia [Recovered/Resolved]
  - Drug resistance [Unknown]
  - Thrombocytopenia [Recovered/Resolved]
  - Haemoglobin decreased [Recovered/Resolved]
  - Blood lactate dehydrogenase increased [Recovered/Resolved]
